FAERS Safety Report 7383670-8 (Version None)
Quarter: 2011Q1

REPORT INFORMATION
  Report Type: 
  Country: None (occurrence: None)
  Receive Date: 20110330
  Receipt Date: 20110324
  Transmission Date: 20110831
  Serious: Yes (Hospitalization)
  Sender: FDA-Public Use
  Company Number: JP-ROCHE-744770

PATIENT
  Age: 9 Year
  Sex: Male

DRUGS (21)
  1. DASATINIB [Suspect]
     Route: 048
     Dates: start: 20100630
  2. PREDNISOLONE [Suspect]
     Indication: LEUKAEMIA
     Route: 048
  3. PREDNISOLONE [Suspect]
     Route: 048
  4. VALGANCICLOVIR [Suspect]
     Route: 048
     Dates: start: 20100906, end: 20100924
  5. DASATINIB [Suspect]
     Route: 048
     Dates: start: 20100528
  6. DASATINIB [Suspect]
     Route: 048
     Dates: start: 20100722, end: 20100924
  7. MAGNESIUM OXIDE [Concomitant]
     Route: 048
     Dates: start: 20100709, end: 20100924
  8. VALGANCICLOVIR [Suspect]
     Indication: CYTOMEGALOVIRUS INFECTION
     Route: 048
     Dates: start: 20100709, end: 20100805
  9. PREDNISOLONE [Suspect]
     Route: 048
  10. BACTRIM [Concomitant]
     Route: 048
     Dates: start: 20100709, end: 20100924
  11. PREDNISOLONE [Suspect]
     Route: 048
  12. NEORAL [Concomitant]
     Route: 048
     Dates: start: 20100722
  13. NEORAL [Concomitant]
     Route: 048
     Dates: start: 20100802, end: 20100924
  14. DASATINIB [Suspect]
     Route: 048
     Dates: start: 20100710
  15. NEORAL [Concomitant]
     Route: 048
     Dates: start: 20100614
  16. DASATINIB [Suspect]
     Route: 048
     Dates: start: 20100715
  17. PREDNISOLONE [Suspect]
     Route: 048
  18. DASATINIB [Suspect]
     Route: 048
     Dates: start: 20100709, end: 20100709
  19. FLUCONAZOLE [Concomitant]
     Route: 048
     Dates: start: 20100709, end: 20100924
  20. NEORAL [Concomitant]
     Route: 048
     Dates: start: 20100609
  21. NEORAL [Concomitant]
     Route: 048
     Dates: start: 20100712

REACTIONS (4)
  - PANCYTOPENIA [None]
  - DIARRHOEA [None]
  - UPPER LIMB FRACTURE [None]
  - HAEMATOCHEZIA [None]
